FAERS Safety Report 11337545 (Version 1)
Quarter: 2015Q3

REPORT INFORMATION
  Report Type: Spontaneous
  Country: US (occurrence: US)
  Receive Date: 20150803
  Receipt Date: 20150803
  Transmission Date: 20151125
  Serious: Yes (Other)
  Sender: FDA-Public Use
  Company Number: US-ELI_LILLY_AND_COMPANY-US200908005363

PATIENT
  Sex: Male
  Weight: 99.77 kg

DRUGS (4)
  1. BYETTA [Concomitant]
     Active Substance: EXENATIDE
  2. ZYPREXA [Suspect]
     Active Substance: OLANZAPINE
     Dosage: 7.5 MG, UNK
  3. ZYPREXA [Suspect]
     Active Substance: OLANZAPINE
     Indication: SCHIZOAFFECTIVE DISORDER
     Dosage: 10 MG, UNK
     Dates: start: 2002
  4. ZYPREXA [Suspect]
     Active Substance: OLANZAPINE
     Dosage: 15 MG, UNK

REACTIONS (4)
  - Blood glucose increased [Unknown]
  - Weight decreased [Unknown]
  - Weight increased [Recovering/Resolving]
  - Diabetes mellitus [Not Recovered/Not Resolved]

NARRATIVE: CASE EVENT DATE: 2004
